FAERS Safety Report 6855210-0 (Version None)
Quarter: 2010Q3

REPORT INFORMATION
  Report Type: 
  Country: None (occurrence: None)
  Receive Date: 20100718
  Receipt Date: 20100715
  Transmission Date: 20110219
  Serious: Yes (Death)
  Sender: FDA-Public Use
  Company Number: US-BRISTOL-MYERS SQUIBB COMPANY-12031829

PATIENT
  Age: 70 Year
  Sex: Male

DRUGS (7)
  1. VEPESID [Suspect]
     Indication: ACUTE LEUKAEMIA
     Route: 042
     Dates: start: 20010925, end: 20010925
  2. SOTALOL [Suspect]
     Indication: ATRIAL FIBRILLATION
  3. AMEKRIN [Suspect]
     Indication: ACUTE LEUKAEMIA
     Route: 042
     Dates: start: 20010925, end: 20010925
  4. SPIRONOLACTONE [Concomitant]
  5. ENALAPRIL MALEATE [Concomitant]
  6. FUROSEMIDE [Concomitant]
  7. ALLOPURINOL [Concomitant]

REACTIONS (3)
  - ARRHYTHMIA [None]
  - CIRCULATORY COLLAPSE [None]
  - SUDDEN CARDIAC DEATH [None]
